FAERS Safety Report 7808425-9 (Version None)
Quarter: 2011Q4

REPORT INFORMATION
  Report Type: 
  Country: None (occurrence: None)
  Receive Date: 20111011
  Receipt Date: 20111011
  Transmission Date: 20120403
  Serious: Yes (Hospitalization, Other)
  Sender: FDA-Public Use
  Company Number: None

PATIENT
  Age: 67 Year
  Sex: Male

DRUGS (4)
  1. ONDANSETRON [Concomitant]
  2. GABAPENTIN [Concomitant]
  3. REVLIMID [Suspect]
     Indication: MULTIPLE MYELOMA
     Dosage: 25 MG DAILY X21D/28D ORALLY
     Route: 048
     Dates: start: 20071001, end: 20110401
  4. OMEPRAZOLE [Concomitant]

REACTIONS (7)
  - MULTIPLE MYELOMA [None]
  - RENAL FAILURE ACUTE [None]
  - OBSTRUCTION [None]
  - HYPERKALAEMIA [None]
  - DISEASE PROGRESSION [None]
  - NEPHROPATHY [None]
  - HAEMODIALYSIS [None]
